FAERS Safety Report 9748351 (Version 3)
Quarter: 2014Q1

REPORT INFORMATION
  Report Type: Spontaneous
  Country: GB (occurrence: GB)
  Receive Date: 20131212
  Receipt Date: 20140214
  Transmission Date: 20141002
  Serious: Yes (Other)
  Sender: FDA-Public Use
  Company Number: GB-RB-061287-13

PATIENT
  Age: 39 Year
  Sex: Male

DRUGS (4)
  1. BUPRENORPHINE UNSPECIFIED [Suspect]
     Indication: PRODUCT USED FOR UNKNOWN INDICATION
     Dosage: DOSING DETAILS UNKNOWN
     Route: 065
  2. ATRIPLA [Suspect]
     Indication: HIV INFECTION
     Dosage: 1 DOSAGE FORM, ATRIPLA^S ACTIVE INGREDIENTS: EFAVIRENZ, EMITRICITABINE, TENOFOVIR DISOPROXIL FUMARAT
     Route: 048
     Dates: end: 20131106
  3. SUSTIVA [Suspect]
     Indication: HIV INFECTION
     Route: 048
     Dates: end: 201309
  4. DIAZEPAM [Concomitant]
     Indication: PRODUCT USED FOR UNKNOWN INDICATION
     Dosage: DOSING DETAILS UNKNOWN
     Route: 065

REACTIONS (3)
  - Depression [Recovered/Resolved]
  - Drug interaction [Unknown]
  - Drug level decreased [Unknown]
